FAERS Safety Report 8610169-0 (Version None)
Quarter: 2012Q3

REPORT INFORMATION
  Report Type: 
  Country: None (occurrence: None)
  Receive Date: 20120822
  Receipt Date: 20120816
  Transmission Date: 20120928
  Serious: No
  Sender: FDA-Public Use
  Company Number: US-BIOGENIDEC-2012BI032038

PATIENT
  Age: 70 Year
  Sex: Female

DRUGS (2)
  1. DECADRON PHOSPHATE [Concomitant]
     Indication: PREMEDICATION
     Dates: start: 20120301
  2. TYSABRI [Suspect]
     Indication: MULTIPLE SCLEROSIS
     Route: 042
     Dates: start: 20120216

REACTIONS (5)
  - DEHYDRATION [None]
  - FEELING ABNORMAL [None]
  - HEADACHE [None]
  - WHITE BLOOD CELL COUNT INCREASED [None]
  - NAUSEA [None]
